FAERS Safety Report 8634738 (Version 2)
Quarter: 2013Q2

REPORT INFORMATION
  Report Type: Spontaneous
  Country: US (occurrence: US)
  Receive Date: 20120626
  Receipt Date: 20130521
  Transmission Date: 20140414
  Serious: Yes (Hospitalization)
  Sender: FDA-Public Use
  Company Number: US-BAYER-2012-062076

PATIENT
  Age: 50 Year
  Sex: Female
  Weight: 63.04 kg

DRUGS (10)
  1. YAZ [Suspect]
  2. YASMIN [Suspect]
     Indication: CONTRACEPTION
  3. OCELLA [Suspect]
  4. ATENOLOL [Concomitant]
     Indication: HYPERTENSION
     Dosage: 50 MG, DAILY
     Dates: start: 20040302, end: 20120124
  5. DYAZIDE [Concomitant]
  6. PLAVIX [Concomitant]
  7. ZOCOR [Concomitant]
  8. TYLENOL [Concomitant]
  9. ULTRAM [Concomitant]
     Dosage: UNK UNK, PRN
  10. ANTIBIOTICS [Concomitant]
     Route: 060

REACTIONS (4)
  - Cerebrovascular accident [Recovering/Resolving]
  - Injury [None]
  - Pain [None]
  - Pain [Recovering/Resolving]
